FAERS Safety Report 12293598 (Version 1)
Quarter: 2016Q2

REPORT INFORMATION
  Report Type: Report from Study
  Country: FR (occurrence: FR)
  Receive Date: 20160421
  Receipt Date: 20160421
  Transmission Date: 20160815
  Serious: Yes (Other)
  Sender: FDA-Public Use
  Company Number: FR-CELGENEUS-FRA-2015012035

PATIENT
  Age: 72 Year
  Sex: Female

DRUGS (4)
  1. DEXAMETHASONE. [Suspect]
     Active Substance: DEXAMETHASONE
     Route: 048
     Dates: start: 20091227, end: 20111010
  2. CC-5013 [Suspect]
     Active Substance: LENALIDOMIDE
     Indication: PLASMA CELL MYELOMA
     Route: 048
     Dates: start: 20090728, end: 20091209
  3. CC-5013 [Suspect]
     Active Substance: LENALIDOMIDE
     Route: 048
     Dates: start: 20091227, end: 20111010
  4. DEXAMETHASONE. [Suspect]
     Active Substance: DEXAMETHASONE
     Indication: PLASMA CELL MYELOMA
     Route: 048
     Dates: start: 20090728, end: 20091210

REACTIONS (1)
  - Endometrial cancer [Recovered/Resolved]

NARRATIVE: CASE EVENT DATE: 201410
